FAERS Safety Report 23533340 (Version 1)
Quarter: 2024Q1

REPORT INFORMATION
  Report Type: Spontaneous
  Country: ES (occurrence: ES)
  Receive Date: 20240216
  Receipt Date: 20240216
  Transmission Date: 20240409
  Serious: Yes (Life-Threatening)
  Sender: FDA-Public Use
  Company Number: None

PATIENT
  Age: 72 Year
  Sex: Female
  Weight: 50 kg

DRUGS (5)
  1. ZOLPIDEM [Suspect]
     Active Substance: ZOLPIDEM TARTRATE
     Indication: Insomnia
     Dosage: 10.0 COMP EVERY 24 HOURS
     Route: 048
     Dates: start: 20180901, end: 20231212
  2. SIMVASTATINA CINFA [Concomitant]
     Indication: Hyperlipidaemia
     Dosage: EFG FILM-COATED TABLETS, 28 TABLETS.??10.0 MG EC
     Route: 048
     Dates: start: 20230329
  3. XARELTO [Concomitant]
     Active Substance: RIVAROXABAN
     Indication: Atrial fibrillation
     Dosage: (28 TABLETS), 28 TABLETS??20.0 MG DE
     Route: 048
     Dates: start: 20201118
  4. PARACETAMOL CINFA [Concomitant]
     Indication: Atrial fibrillation
     Dosage: EFG TABLETS, 40 TABLETS??1.0 G DECOCE
     Route: 048
     Dates: start: 20190219
  5. BISOPROLOL [Concomitant]
     Active Substance: BISOPROLOL\BISOPROLOL FUMARATE
     Indication: Visual impairment
     Dosage: EFG FILM-COATED TABLETS, 20 TABLETS
     Route: 048
     Dates: start: 20190301

REACTIONS (1)
  - Somnambulism [Not Recovered/Not Resolved]

NARRATIVE: CASE EVENT DATE: 20230612
